FAERS Safety Report 4974225-0 (Version None)
Quarter: 2006Q2

REPORT INFORMATION
  Report Type: 
  Country: None (occurrence: None)
  Receive Date: 20060417
  Receipt Date: 20051215
  Transmission Date: 20061013
  Serious: Yes (Hospitalization)
  Sender: FDA-Public Use
  Company Number: US-MERCK-0512USA02574

PATIENT
  Age: 63 Year
  Sex: Male
  Weight: 105 kg

DRUGS (6)
  1. VIOXX [Suspect]
     Indication: NECK PAIN
     Route: 048
     Dates: start: 20010221, end: 20030831
  2. PERCOCET [Concomitant]
     Indication: PAIN
     Route: 065
     Dates: start: 20010101
  3. NAPROXEN [Concomitant]
     Indication: PAIN
     Route: 065
     Dates: start: 20010101
  4. LIDODERM [Concomitant]
     Route: 065
  5. DEXAMETHASONE [Concomitant]
     Route: 065
  6. KENALOG [Concomitant]
     Route: 065

REACTIONS (13)
  - ANAEMIA [None]
  - ARTERIOSCLEROSIS CORONARY ARTERY [None]
  - BLOOD CHOLESTEROL INCREASED [None]
  - DIZZINESS [None]
  - DYSLIPIDAEMIA [None]
  - DYSPNOEA [None]
  - GASTROOESOPHAGEAL REFLUX DISEASE [None]
  - HEADACHE [None]
  - HYPERTENSION [None]
  - MUSCULOSKELETAL CHEST PAIN [None]
  - MYOCARDIAL INFARCTION [None]
  - RENAL FAILURE [None]
  - WHEEZING [None]
